FAERS Safety Report 4919072-0 (Version None)
Quarter: 2006Q1

REPORT INFORMATION
  Report Type: 
  Country: None (occurrence: None)
  Receive Date: 20060222
  Receipt Date: 20060213
  Transmission Date: 20060701
  Serious: Yes (Other)
  Sender: FDA-Public Use
  Company Number: 2006PK00370

PATIENT
  Age: 18153 Day
  Sex: Male

DRUGS (1)
  1. ARIMIDEX [Suspect]
     Indication: BREAST CANCER
     Route: 048
     Dates: start: 20051201, end: 20051219

REACTIONS (2)
  - DERMATITIS [None]
  - NEURODERMATITIS [None]
